FAERS Safety Report 11940065 (Version 3)
Quarter: 2016Q1

REPORT INFORMATION
  Report Type: Spontaneous
  Country: US (occurrence: US)
  Receive Date: 20160122
  Receipt Date: 20160328
  Transmission Date: 20160526
  Serious: Yes (Hospitalization, Disabling, Other)
  Sender: FDA-Public Use
  Company Number: US-BAYER-2016-009001

PATIENT
  Age: 33 Year
  Sex: Female
  Weight: 95.24 kg

DRUGS (7)
  1. REGLAN [Concomitant]
     Active Substance: METOCLOPRAMIDE HYDROCHLORIDE
  2. DOCUSATE SODIUM. [Concomitant]
     Active Substance: DOCUSATE SODIUM
  3. NAPROXEN. [Concomitant]
     Active Substance: NAPROXEN
  4. MIRENA [Suspect]
     Active Substance: LEVONORGESTREL
     Indication: CONTRACEPTION
     Dosage: 20 MCG/24HR, CONT
     Route: 015
     Dates: start: 20130805, end: 20150701
  5. CYCLOBENZAPRINE [Concomitant]
     Active Substance: CYCLOBENZAPRINE
  6. DEPO-PROVERA [Concomitant]
     Active Substance: MEDROXYPROGESTERONE ACETATE
  7. IBUPROFEN. [Concomitant]
     Active Substance: IBUPROFEN

REACTIONS (14)
  - Genital haemorrhage [None]
  - Drug ineffective [None]
  - Depressed mood [None]
  - Emotional distress [None]
  - Medical device discomfort [None]
  - Depression [None]
  - Uterine perforation [None]
  - Pelvic pain [None]
  - Anxiety [None]
  - Fear [None]
  - Abdominal pain [None]
  - Internal injury [None]
  - Pregnancy with contraceptive device [None]
  - Device difficult to use [None]

NARRATIVE: CASE EVENT DATE: 201401
